FAERS Safety Report 9251725 (Version 1)
Quarter: 2013Q1

REPORT INFORMATION
  Report Type: Spontaneous
  Country: US (occurrence: None)
  Receive Date: 20130305
  Receipt Date: 20130305
  Transmission Date: 20140127
  Serious: Yes (Other)
  Sender: FDA-Public Use
  Company Number: 163-21880-12081734

PATIENT
  Age: 27 Year
  Sex: Female

DRUGS (1)
  1. REVLIMID [Suspect]
     Indication: MALIGNANT LYMPHOID NEOPLASM
     Dosage: 07/13/2012 - 2012, CAPSULE, 5 MG, 14 IN 28 D, PO
     Dates: start: 20120713, end: 2012

REACTIONS (1)
  - Full blood count decreased [None]
